FAERS Safety Report 8879815 (Version 2)
Quarter: 2013Q1

REPORT INFORMATION
  Report Type: Report from Study
  Country: JP (occurrence: JP)
  Receive Date: 20121101
  Receipt Date: 20130206
  Transmission Date: 20140127
  Serious: Yes (Other)
  Sender: FDA-Public Use
  Company Number: JP-VERTEX PHARMACEUTICAL INC.-2012-023876

PATIENT
  Age: 64 Year
  Sex: Male

DRUGS (6)
  1. VX-950 (TELAPREVIR) [Suspect]
     Indication: HEPATITIS C
     Dosage: 2250 MG, QD
     Dates: start: 20120418, end: 20120712
  2. RIBAVIRIN [Suspect]
     Indication: HEPATITIS C
     Dosage: 600 MG, QD
     Route: 048
     Dates: start: 20120418
  3. PEGINTERFERON ALFA-2B [Suspect]
     Indication: HEPATITIS C
     Dosage: 1.5 ?G, QW
     Route: 058
     Dates: start: 20120418
  4. URSO [Concomitant]
     Dosage: 600 MG, QD
     Route: 048
     Dates: start: 20090127
  5. URSO [Concomitant]
     Dosage: 6 DF,QD
     Route: 048
  6. AMOBAN [Concomitant]
     Dosage: 1 DF, QD
     Route: 048

REACTIONS (1)
  - White blood cell count decreased [Recovered/Resolved]
